FAERS Safety Report 19352916 (Version 1)
Quarter: 2021Q2

REPORT INFORMATION
  Report Type: Spontaneous
  Country: ES (occurrence: ES)
  Receive Date: 20210601
  Receipt Date: 20210601
  Transmission Date: 20210717
  Serious: Yes (Other)
  Sender: FDA-Public Use
  Company Number: ES-EUSA PHARMA (UK) LIMITED-2021ES000116

PATIENT
  Sex: Male

DRUGS (4)
  1. SYLVANT [Suspect]
     Active Substance: SILTUXIMAB
     Indication: CASTLEMAN^S DISEASE
     Dosage: 11 MG/KG, WEEKLY CYCLE 1 (WEEKLY SCEDULE FOR 1 MONTH)
     Route: 065
     Dates: start: 20210408, end: 20210414
  2. CORTICOSTEROIDS [Concomitant]
     Active Substance: CORTICOSTEROID NOS
     Indication: CASTLEMAN^S DISEASE
     Dosage: UNK, WEEKLY
     Route: 065
     Dates: start: 20210408
  3. SYLVANT [Suspect]
     Active Substance: SILTUXIMAB
     Dosage: 11 MG/KG, EVERY 3 WEEKS
     Route: 042
     Dates: start: 202105
  4. SYLVANT [Suspect]
     Active Substance: SILTUXIMAB
     Dosage: 11 MG/KG, WEEKLY CYCLE 2 (FOR 1 MONTH)
     Route: 065
     Dates: start: 20210415

REACTIONS (2)
  - Off label use [Unknown]
  - Thrombocytopenia [Recovering/Resolving]

NARRATIVE: CASE EVENT DATE: 20210408
